FAERS Safety Report 6400380-1 (Version None)
Quarter: 2009Q4

REPORT INFORMATION
  Report Type: 
  Country: None (occurrence: None)
  Receive Date: 20091007
  Receipt Date: 20091007
  Transmission Date: 20100525
  Serious: Yes (Hospitalization)
  Sender: FDA-Public Use
  Company Number: None

PATIENT
  Sex: Male
  Weight: 73 kg

DRUGS (14)
  1. TEMOZOLOMIDE [Suspect]
     Indication: GLIOBLASTOMA MULTIFORME
     Dosage: 300 MG/DAY X5 DAYS ORAL
     Route: 048
     Dates: start: 20090317
  2. DIPHENHYDRAMINE HCL [Concomitant]
  3. PROMETHAZINE [Concomitant]
  4. ZOLPIDEM [Concomitant]
  5. DEXAMETHASONE 0.5MG TAB [Concomitant]
  6. HYDROMORPHONE [Concomitant]
  7. MAGNESIUM OXIDE [Concomitant]
  8. SENNA [Concomitant]
  9. M.V.I. [Concomitant]
  10. METOPROLOL [Concomitant]
  11. RANITIDINE [Concomitant]
  12. ATORVASTATIN [Concomitant]
  13. ACETAMINOPHEN [Concomitant]
  14. PHENYTOIN [Concomitant]

REACTIONS (1)
  - STEVENS-JOHNSON SYNDROME [None]
